FAERS Safety Report 8180592-X (Version None)
Quarter: 2012Q1

REPORT INFORMATION
  Report Type: 
  Country: None (occurrence: None)
  Receive Date: 20120302
  Receipt Date: 20120229
  Transmission Date: 20120608
  Serious: Yes (Death, Other)
  Sender: FDA-Public Use
  Company Number: US-ROCHE-1041068

PATIENT
  Sex: Male

DRUGS (3)
  1. COREG [Concomitant]
     Indication: ATRIAL FIBRILLATION
  2. COUMADIN [Concomitant]
     Indication: ATRIAL FIBRILLATION
  3. ZELBORAF [Suspect]
     Indication: MALIGNANT MELANOMA
     Dates: start: 20111018

REACTIONS (2)
  - METASTATIC NEOPLASM [None]
  - VOMITING [None]
